FAERS Safety Report 17808499 (Version 1)
Quarter: 2020Q2

REPORT INFORMATION
  Report Type: Report from Study
  Country: US (occurrence: US)
  Receive Date: 20200520
  Receipt Date: 20200520
  Transmission Date: 20200714
  Serious: Yes (Death, Hospitalization)
  Sender: FDA-Public Use
  Company Number: US-BIOGEN-2020BI00874676

PATIENT
  Age: 45 Year
  Sex: Female

DRUGS (1)
  1. TECFIDERA [Suspect]
     Active Substance: DIMETHYL FUMARATE
     Indication: RELAPSING-REMITTING MULTIPLE SCLEROSIS
     Route: 065
     Dates: start: 2013, end: 2020

REACTIONS (10)
  - COVID-19 [Fatal]
  - Tachycardia [Unknown]
  - Secondary progressive multiple sclerosis [Unknown]
  - Urinary tract infection [Recovered/Resolved]
  - Nystagmus [Unknown]
  - Muscular weakness [Unknown]
  - Visual impairment [Unknown]
  - Dysarthria [Unknown]
  - Ataxia [Unknown]
  - Hypotension [Unknown]

NARRATIVE: CASE EVENT DATE: 2020
